FAERS Safety Report 8523854-6 (Version None)
Quarter: 2012Q3

REPORT INFORMATION
  Report Type: 
  Country: None (occurrence: None)
  Receive Date: 20120720
  Receipt Date: 20120710
  Transmission Date: 20120928
  Serious: Yes (Other)
  Sender: FDA-Public Use
  Company Number: TR-SANOFI-AVENTIS-2012SA048060

PATIENT
  Age: 73 Year
  Sex: Female
  Weight: 75 kg

DRUGS (3)
  1. KYTRIL [Concomitant]
     Indication: PREMEDICATION
     Route: 042
     Dates: start: 20120627, end: 20120627
  2. XELODA [Concomitant]
     Route: 048
     Dates: start: 20120627
  3. ELOXATIN [Suspect]
     Indication: COLON CANCER
     Route: 042
     Dates: start: 20120627, end: 20120627

REACTIONS (6)
  - SPEECH DISORDER [None]
  - HYPERTENSION [None]
  - VISUAL IMPAIRMENT [None]
  - RESPIRATORY DISTRESS [None]
  - ANXIETY [None]
  - NEUROPATHY PERIPHERAL [None]
